FAERS Safety Report 7889516-3 (Version None)
Quarter: 2011Q4

REPORT INFORMATION
  Report Type: 
  Country: None (occurrence: None)
  Receive Date: 20111103
  Receipt Date: 20111031
  Transmission Date: 20120403
  Serious: Yes (Other)
  Sender: FDA-Public Use
  Company Number: US-PFIZER INC-2011219368

PATIENT
  Sex: Female
  Weight: 49.43 kg

DRUGS (13)
  1. POTASSIUM CHLORIDE [Concomitant]
     Dosage: 10 MEQ, ALTERNATE DAY
     Route: 048
  2. DIOCTYL SODIUM SULFOSUCCINATE [Concomitant]
     Dosage: 250 MG, 1X/DAY (1 CAP ONCE A DAY)
     Route: 048
  3. LISINOPRIL [Concomitant]
     Indication: HYPERTENSION
     Dosage: 10 MG, 2X/DAY
     Route: 048
  4. SPIRONOLACTONE [Concomitant]
     Dosage: 25 MG, 1X/DAY
     Route: 048
  5. DOCUSATE [Concomitant]
     Dosage: 250 MG, 1X/DAY
     Route: 048
  6. PROTONIX [Suspect]
     Dosage: UNK
     Route: 048
     Dates: start: 20100823, end: 20100901
  7. FUROSEMIDE [Concomitant]
     Dosage: 40 MG, 1X/DAY
     Route: 048
  8. NITROGLYCERIN [Concomitant]
     Dosage: 0.4 MG, AS NEEDED
     Route: 060
  9. PLAVIX [Concomitant]
     Dosage: 75 MG, UNK
  10. LOVASTATIN [Concomitant]
     Dosage: 40 MG, 1X/DAY
     Route: 048
  11. PEPCID [Concomitant]
     Indication: ABDOMINAL DISCOMFORT
     Dosage: UNK
     Dates: start: 20090101
  12. PROTONIX [Suspect]
     Indication: GASTROOESOPHAGEAL REFLUX DISEASE
     Dosage: UNK
     Route: 048
     Dates: start: 20050101
  13. ACETYLSALICYLIC ACID [Concomitant]
     Dosage: 81 MG, ALTERNATE DAY
     Route: 048

REACTIONS (7)
  - MYOCARDIAL INFARCTION [None]
  - PALPITATIONS [None]
  - ABDOMINAL PAIN UPPER [None]
  - GASTROOESOPHAGEAL REFLUX DISEASE [None]
  - DRUG HYPERSENSITIVITY [None]
  - WEIGHT DECREASED [None]
  - GALLBLADDER DISORDER [None]
